FAERS Safety Report 9970510 (Version 1)
Quarter: 2014Q1

REPORT INFORMATION
  Report Type: Report from Study
  Country: US (occurrence: US)
  Receive Date: 20140306
  Receipt Date: 20140306
  Transmission Date: 20141002
  Serious: No
  Sender: FDA-Public Use
  Company Number: US-ABBVIE-13P-163-1148988-00

PATIENT
  Age: 54 Year
  Sex: Female
  Weight: 73.55 kg

DRUGS (6)
  1. HUMIRA [Suspect]
     Indication: RHEUMATOID ARTHRITIS
     Dates: start: 201307
  2. METHOTREXATE [Concomitant]
     Indication: RHEUMATOID ARTHRITIS
  3. PREDNISONE [Concomitant]
     Indication: RHEUMATOID ARTHRITIS
  4. FLUOXETINE [Concomitant]
     Indication: DEPRESSION
  5. UNNAMED MEDICATION [Concomitant]
     Indication: BLOOD CHOLESTEROL INCREASED
  6. UNNAMED MEDICATION [Concomitant]
     Indication: HYPERTENSION

REACTIONS (2)
  - Alopecia [Not Recovered/Not Resolved]
  - Injection site pain [Not Recovered/Not Resolved]
